FAERS Safety Report 7288348-7 (Version None)
Quarter: 2011Q1

REPORT INFORMATION
  Report Type: 
  Country: None (occurrence: None)
  Receive Date: 20110211
  Receipt Date: 20110208
  Transmission Date: 20110831
  Serious: Yes (Other)
  Sender: FDA-Public Use
  Company Number: US-PFIZER INC-2011028614

PATIENT
  Sex: Female
  Weight: 90.703 kg

DRUGS (3)
  1. DETROL LA [Suspect]
     Indication: POLLAKIURIA
     Dosage: 2 MG, 2X/DAY
     Route: 048
     Dates: start: 20050101
  2. MULTI-VITAMINS [Concomitant]
     Dosage: UNK
  3. LOVAZA [Concomitant]

REACTIONS (6)
  - POLLAKIURIA [None]
  - FLUID RETENTION [None]
  - DRUG INEFFECTIVE [None]
  - FATIGUE [None]
  - DIABETES MELLITUS [None]
  - RENAL DISORDER [None]
